FAERS Safety Report 10058305 (Version 1)
Quarter: 2014Q2

REPORT INFORMATION
  Report Type: Spontaneous
  Country: US (occurrence: US)
  Receive Date: 20140404
  Receipt Date: 20140404
  Transmission Date: 20141212
  Serious: Yes (Hospitalization)
  Sender: FDA-Public Use
  Company Number: US-ELI_LILLY_AND_COMPANY-US201403009055

PATIENT
  Sex: Female

DRUGS (3)
  1. INSULIN HUMAN [Suspect]
     Indication: TYPE 2 DIABETES MELLITUS
     Dosage: UNK
     Route: 065
     Dates: start: 1974
  2. HUMULIN NPH [Suspect]
     Indication: TYPE 2 DIABETES MELLITUS
     Dosage: UNK
     Route: 065
     Dates: start: 1974
  3. ACIPHEX [Suspect]
     Indication: PRODUCT USED FOR UNKNOWN INDICATION
     Dosage: UNK
     Route: 065

REACTIONS (7)
  - Ankle fracture [Not Recovered/Not Resolved]
  - Road traffic accident [Recovered/Resolved]
  - Thyroid disorder [Unknown]
  - Visual acuity reduced [Not Recovered/Not Resolved]
  - Arthritis [Unknown]
  - Drug hypersensitivity [Not Recovered/Not Resolved]
  - Allergy to plants [Not Recovered/Not Resolved]
